FAERS Safety Report 25625276 (Version 1)
Quarter: 2025Q3

REPORT INFORMATION
  Report Type: Report from Study
  Country: US (occurrence: US)
  Receive Date: 20250731
  Receipt Date: 20250731
  Transmission Date: 20251020
  Serious: Yes (Hospitalization)
  Sender: IMMUNOCORE
  Company Number: US-IMMUNOCORE, LTD-2025-IMC-004459

PATIENT
  Age: 79 Year
  Sex: Male

DRUGS (1)
  1. KIMMTRAK [Suspect]
     Active Substance: TEBENTAFUSP-TEBN
     Indication: Metastatic ocular melanoma

REACTIONS (1)
  - Drug intolerance [Unknown]

NARRATIVE: CASE EVENT DATE: 20250717
